FAERS Safety Report 8813244 (Version 1)
Quarter: 2012Q4

REPORT INFORMATION
  Report Type: 
  Country: US (occurrence: US)
  Receive Date: 20120927
  Receipt Date: 20120927
  Transmission Date: 20130627
  Serious: No
  Sender: FDA-Public Use
  Company Number: US-AMGEN-USASP2012040330

PATIENT
  Sex: Female

DRUGS (4)
  1. PROLIA [Suspect]
     Indication: OSTEOPOROSIS POSTMENOPAUSAL
     Dosage: 60 mg, q6mo
  2. L-THYROXINE                        /00068001/ [Concomitant]
     Dosage: UNK
  3. LIVALO [Concomitant]
     Dosage: UNK
  4. CALCIUM WITH VITAMIN D             /01233101/ [Concomitant]

REACTIONS (2)
  - Jaw disorder [Not Recovered/Not Resolved]
  - Pain in jaw [Not Recovered/Not Resolved]
